FAERS Safety Report 9400227 (Version 2)
Quarter: 2013Q3

REPORT INFORMATION
  Report Type: Spontaneous
  Country: US (occurrence: US)
  Receive Date: 20130715
  Receipt Date: 20130731
  Transmission Date: 20140515
  Serious: Yes (Other)
  Sender: FDA-Public Use
  Company Number: US-B.I. PHARMACEUTICALS,INC./RIDGEFIELD-2013-BI-20199BP

PATIENT
  Age: 62 Year
  Sex: Male
  Weight: 86.18 kg

DRUGS (17)
  1. COMBIVENT [Suspect]
     Indication: CHRONIC OBSTRUCTIVE PULMONARY DISEASE
     Dosage: STRENGTH: 20 MCG / 100 MCG; DAILY DOSE: 80 MCG / 400 MCG
     Route: 055
     Dates: start: 20130706, end: 20130706
  2. COMBIVENT [Suspect]
     Indication: ASTHMA
  3. PRADAXA [Suspect]
     Indication: ATRIAL FIBRILLATION
     Dosage: 300 MG
     Route: 048
     Dates: start: 20130125
  4. DILTIAZEM [Concomitant]
     Indication: HYPERTENSION
     Dosage: 180 MG
     Route: 048
  5. LASIX [Concomitant]
     Dosage: 80 MG
     Route: 048
  6. ALLOPURINAL [Concomitant]
     Indication: GOUT
     Dosage: 100 MG
     Route: 048
  7. OXYCODONE [Concomitant]
     Indication: SPINAL COLUMN STENOSIS
     Dosage: 20 MG
     Route: 048
  8. LORAZEPAM [Concomitant]
     Indication: ANXIETY
     Dosage: 1.5 MG
     Route: 048
  9. DURAGESIC TRANSDERMAL PATCH [Concomitant]
     Indication: SPINAL COLUMN STENOSIS
     Dosage: FORMULATION:PATCH; STRENGTH: 50 MCG
     Route: 061
  10. BUSPAR [Concomitant]
     Indication: ANXIETY
     Dosage: 30 MG
     Route: 048
  11. FOLIC ACID [Concomitant]
     Dosage: 1 MG
     Route: 048
  12. PRILOSEC [Concomitant]
     Indication: GASTROOESOPHAGEAL REFLUX DISEASE
     Dosage: 40 MG
     Route: 048
  13. LISINOPRIL [Concomitant]
     Indication: HYPERTENSION
     Dosage: 40 MG
     Route: 048
  14. BACLOFEN [Concomitant]
     Indication: SPINAL COLUMN STENOSIS
     Dosage: 30 MG
     Route: 048
  15. ZOCOR [Concomitant]
     Indication: BLOOD CHOLESTEROL INCREASED
     Dosage: 20 MG
     Route: 048
  16. LEVOTHYROXINE [Concomitant]
     Indication: HYPOTHYROIDISM
     Dosage: 150 MCG
     Route: 048
  17. LACTULOSE SYRUP [Concomitant]
     Dosage: STRENGTH: 3 TSP; DAILY DOSE: 9 TSP
     Route: 048

REACTIONS (4)
  - Micturition frequency decreased [Not Recovered/Not Resolved]
  - Dyspnoea [Recovered/Resolved]
  - Chest pain [Not Recovered/Not Resolved]
  - Product quality issue [Recovered/Resolved]
